FAERS Safety Report 4994917-7 (Version None)
Quarter: 2006Q2

REPORT INFORMATION
  Report Type: 
  Country: None (occurrence: None)
  Receive Date: 20060503
  Receipt Date: 20060419
  Transmission Date: 20061013
  Serious: Yes (Hospitalization)
  Sender: FDA-Public Use
  Company Number: 2006PV012299

PATIENT
  Age: 61 Year
  Sex: Male

DRUGS (7)
  1. BYETTA [Suspect]
     Indication: DIABETES MELLITUS NON-INSULIN-DEPENDENT
     Dosage: SC
     Route: 058
  2. GLIPIZIDE [Concomitant]
  3. ACTOS [Concomitant]
  4. LESCOL XL [Concomitant]
  5. CARDIZEM CD [Concomitant]
  6. ACCUPRIL [Concomitant]
  7. ASPIRIN [Concomitant]

REACTIONS (3)
  - CARDIAC DISORDER [None]
  - CARDIAC PACEMAKER INSERTION [None]
  - DYSPNOEA [None]
